FAERS Safety Report 9035772 (Version 1)
Quarter: 2013Q1

REPORT INFORMATION
  Report Type: Other
  Country: US (occurrence: US)
  Receive Date: 20130129
  Receipt Date: 20130129
  Transmission Date: 20140127
  Serious: Yes (Death)
  Sender: FDA-Public Use
  Company Number: US-FRI-1000042107

PATIENT
  Age: 48 Year
  Sex: Male

DRUGS (2)
  1. CITALOPRAM [Suspect]
  2. ETHANOL [Suspect]

REACTIONS (1)
  - Completed suicide [Fatal]
